FAERS Safety Report 21182751 (Version 1)
Quarter: 2022Q3

REPORT INFORMATION
  Report Type: Spontaneous
  Country: CA (occurrence: CA)
  Receive Date: 20220808
  Receipt Date: 20220808
  Transmission Date: 20221026
  Serious: Yes (Death, Hospitalization, Other)
  Sender: FDA-Public Use
  Company Number: CA-BAXTER-2022BAX016445

PATIENT
  Age: 76 Year
  Sex: Male
  Weight: 97 kg

DRUGS (4)
  1. CYCLOPHOSPHAMIDE [Suspect]
     Active Substance: CYCLOPHOSPHAMIDE
     Indication: Product used for unknown indication
     Dosage: (750.0 MG/M2, 1 EVERY 14 DAYS, INTRAVENOUS (NOT OTHERWISE SPECIFIED)), DOSAGE FORM: POWDER FOR SOLUT
     Route: 042
  2. DOXORUBICIN [Suspect]
     Active Substance: DOXORUBICIN
     Indication: Product used for unknown indication
     Dosage: (50.0 MG/M2, 1 EVERY 14 DAYS, DOSAGE FORM: SOLUTION INTRAVENOUS, ROUTE:INTRAVENOUS (NOT OTHERWISE SP
     Route: 042
  3. TRUXIMA [Suspect]
     Active Substance: RITUXIMAB-ABBS
     Indication: Product used for unknown indication
     Dosage: (375.0 MG/M2, 1 EVERY 14 DAYS, INTRAVENOUS (NOT OTHERWISE SPECIFIED)), DOSAGE FORM: SOLUTION INTRAVE
     Route: 042
  4. VINCRISTINE SULFATE [Suspect]
     Active Substance: VINCRISTINE SULFATE
     Indication: Product used for unknown indication
     Dosage: 1.0 MILLIGRAM/MILLILITER, 1 EVERY 14 DAYS, INTRAVENOUS (NOT OTHERWISE SPECIFIED), DOSAGE FORM: SOLUT
     Route: 042

REACTIONS (1)
  - Meningitis cryptococcal [Fatal]
